FAERS Safety Report 5696171-X (Version None)
Quarter: 2008Q2

REPORT INFORMATION
  Report Type: 
  Country: None (occurrence: None)
  Receive Date: 20080407
  Receipt Date: 20080327
  Transmission Date: 20081010
  Serious: Yes (Other)
  Sender: FDA-Public Use
  Company Number: US-AVENTIS-200718358US

PATIENT
  Sex: Female

DRUGS (18)
  1. KETEK [Suspect]
     Indication: SINUSITIS
     Dates: start: 20050817
  2. KETEK [Suspect]
     Indication: BRONCHITIS
     Dates: start: 20050817
  3. DICLOFENAC EXT-REL [Concomitant]
  4. NASONEX [Concomitant]
  5. PROMETHAZINE [Concomitant]
     Dosage: DOSE: UNK
  6. ACETAMINOPHEN AND HYDROCODONE BITARTRATE [Concomitant]
     Dosage: DOSE: 10/325
  7. ALBUTEROL [Concomitant]
     Dosage: DOSE: 90 MIC INHALER
     Route: 055
  8. FENTANYL TRANSDERMAL SYSTEM [Concomitant]
     Dosage: DOSE: 100 MCG/HR
     Route: 062
  9. DRUGS USED IN NICOTINE DEPENDENCE [Concomitant]
     Dosage: DOSE: 1 MG CONT
  10. LEVOTHYROXINE SODIUM [Concomitant]
     Dosage: DOSE: UNK
  11. AMBIEN [Concomitant]
     Dosage: DOSE: UNK
  12. DICLOFENAC SODIUM [Concomitant]
     Dosage: DOSE: EXTENDED RELEASE
  13. TIZANIDINE HCL [Concomitant]
     Dosage: DOSE: UNK
  14. CARISOPRODOL [Concomitant]
     Dosage: DOSE: UNK
  15. BUTALBITAL ACETAMINOPHEN AND CAFFEINE [Concomitant]
     Dosage: DOSE: UNK
  16. DIPHENHYDRAMINE HCL [Concomitant]
     Dosage: DOSE: UNK
  17. MIRALAX [Concomitant]
     Dosage: DOSE: UNK
  18. METOCLOPRAMIDE [Concomitant]

REACTIONS (6)
  - ALANINE AMINOTRANSFERASE INCREASED [None]
  - ASPARTATE AMINOTRANSFERASE INCREASED [None]
  - GAMMA-GLUTAMYLTRANSFERASE INCREASED [None]
  - HEPATIC CIRRHOSIS [None]
  - HEPATIC FIBROSIS [None]
  - HEPATITIS C [None]
